FAERS Safety Report 5093957-X (Version None)
Quarter: 2006Q3

REPORT INFORMATION
  Report Type: 
  Country: None (occurrence: None)
  Receive Date: 20060831
  Receipt Date: 20060509
  Transmission Date: 20061208
  Serious: Yes (Other)
  Sender: FDA-Public Use
  Company Number: PHNU2006DE01946

PATIENT
  Age: 63 Year
  Sex: Male

DRUGS (7)
  1. LOCOL [Suspect]
     Indication: HYPERCHOLESTEROLAEMIA
     Dosage: 80 MG, QD
     Route: 048
     Dates: start: 20060422
  2. PAROXETINE HCL [Concomitant]
     Indication: DEPRESSION
     Dosage: 40 MG DAILY
     Route: 048
     Dates: start: 20060422
  3. ISCOVER [Concomitant]
     Dosage: 75 MG DAILY
     Route: 048
     Dates: start: 20060422
  4. AQUAPHOR                                /CAN/ [Concomitant]
     Dosage: 20 MG DAILY
     Route: 048
     Dates: start: 20060422
  5. BISOPROLOL FUMARATE [Concomitant]
     Dosage: 5 MG DAILY
     Route: 048
     Dates: start: 20060422
  6. CLONIDINE [Concomitant]
  7. HALDOL [Concomitant]

REACTIONS (3)
  - GAMMA-GLUTAMYLTRANSFERASE INCREASED [None]
  - GASTRODUODENITIS [None]
  - GASTROOESOPHAGEAL SPHINCTER INSUFFICIENCY [None]
